FAERS Safety Report 7710744-1 (Version None)
Quarter: 2011Q3

REPORT INFORMATION
  Report Type: 
  Country: None (occurrence: None)
  Receive Date: 20110825
  Receipt Date: 20110816
  Transmission Date: 20111222
  Serious: Yes (Other)
  Sender: FDA-Public Use
  Company Number: PHHY2011US06916

PATIENT
  Sex: Female

DRUGS (17)
  1. ZYRTEC [Concomitant]
     Dosage: UNK
  2. ADDERALL 5 [Concomitant]
     Dosage: UNK
  3. ZOFRAN [Concomitant]
     Dosage: UNK
  4. SANCTURA [Concomitant]
     Dosage: UNK
  5. SYNTHROID [Concomitant]
     Dosage: UNK
  6. TOPAMAX [Concomitant]
     Dosage: UNK
  7. ZOMIG [Concomitant]
     Dosage: UNK
  8. LUVOX [Concomitant]
     Dosage: UNK
  9. CYMBALTA [Concomitant]
     Dosage: UNK
  10. KLONOPIN [Concomitant]
     Dosage: UNK
  11. ULTRAM [Concomitant]
     Dosage: UNK
  12. VALTREX [Concomitant]
     Dosage: UNK
  13. NORCO [Concomitant]
     Dosage: UNK
  14. IMITREX [Concomitant]
     Dosage: UNK
  15. GILENYA [Suspect]
     Indication: MULTIPLE SCLEROSIS
     Dosage: 0.5 MG, QD
     Route: 048
     Dates: start: 20110126, end: 20110127
  16. LAMICTAL [Concomitant]
     Dosage: UNK
  17. AMBIEN [Concomitant]
     Dosage: UNK

REACTIONS (4)
  - FATIGUE [None]
  - PAIN [None]
  - HEADACHE [None]
  - HEART RATE IRREGULAR [None]
